FAERS Safety Report 8008784-0 (Version None)
Quarter: 2011Q4

REPORT INFORMATION
  Report Type: 
  Country: None (occurrence: None)
  Receive Date: 20111221
  Receipt Date: 20111212
  Transmission Date: 20120403
  Serious: Yes (Hospitalization)
  Sender: FDA-Public Use
  Company Number: AXC-2011-000523

PATIENT
  Sex: Female

DRUGS (2)
  1. AMINOVACT (ISOLEUCINE, LEUCINE, VALINE) [Concomitant]
  2. URSODEOXYCHOLIC ACID (URSODEOXYCHOLIC ACID) TABLET, 50MG [Suspect]
     Indication: HEPATIC FUNCTION ABNORMAL
     Dosage: 600 MG, QD, ORAL
     Route: 048
     Dates: start: 20090601

REACTIONS (2)
  - GINGIVAL INFECTION [None]
  - GINGIVAL BLEEDING [None]
